FAERS Safety Report 13940516 (Version 1)
Quarter: 2017Q3

REPORT INFORMATION
  Report Type: Spontaneous
  Country: US (occurrence: US)
  Receive Date: 20170906
  Receipt Date: 20170906
  Transmission Date: 20171127
  Serious: No
  Sender: FDA-Public Use
  Company Number: US-PFIZER INC-2017382544

PATIENT
  Sex: Male

DRUGS (6)
  1. VERSED [Suspect]
     Active Substance: MIDAZOLAM HYDROCHLORIDE
     Dosage: UNK
  2. ORAP [Suspect]
     Active Substance: PIMOZIDE
     Dosage: UNK
  3. HALCION [Suspect]
     Active Substance: TRIAZOLAM
     Dosage: UNK
  4. ERGOTAMINE [Suspect]
     Active Substance: CAFFEINE\ERGOTAMINE\ERGOTAMINE TARTRATE
     Dosage: UNK
  5. PROPULSID [Suspect]
     Active Substance: CISAPRIDE
     Dosage: UNK
  6. BEPRIDIL [Suspect]
     Active Substance: BEPRIDIL
     Dosage: UNK

REACTIONS (1)
  - Drug hypersensitivity [Unknown]
